FAERS Safety Report 16406293 (Version 2)
Quarter: 2020Q1

REPORT INFORMATION
  Report Type: Spontaneous
  Country: FR (occurrence: FR)
  Receive Date: 20190607
  Receipt Date: 20200303
  Transmission Date: 20200409
  Serious: Yes (Death)
  Sender: FDA-Public Use
  Company Number: FR-PFIZER INC-2019239602

PATIENT
  Age: 69 Year
  Sex: Female
  Weight: 80 kg

DRUGS (13)
  1. PLITICAN [Concomitant]
     Active Substance: ALIZAPRIDE HYDROCHLORIDE
     Dosage: UNK
  2. VFEND [Suspect]
     Active Substance: VORICONAZOLE
     Indication: BRONCHOPULMONARY ASPERGILLOSIS
     Dosage: 300 MG, 1X/DAY
     Route: 042
     Dates: start: 20181211, end: 20181223
  3. VITAMINE K1 CHEPLAPHARM [Suspect]
     Active Substance: PHYTONADIONE
     Indication: COAGULOPATHY
     Dosage: 2 DF, 1X/DAY
     Route: 048
     Dates: start: 20181212, end: 20181223
  4. METRONIDAZOLE. [Concomitant]
     Active Substance: METRONIDAZOLE
     Dosage: UNK
  5. TRAMADOL HYDROCHLORIDE. [Concomitant]
     Active Substance: TRAMADOL HYDROCHLORIDE
     Dosage: UNK
  6. SALBUTAMOL [Concomitant]
     Active Substance: ALBUTEROL
     Dosage: UNK
  7. IMOVANE [Concomitant]
     Active Substance: ZOPICLONE
     Dosage: UNK
  8. FLUCONAZOLE. [Concomitant]
     Active Substance: FLUCONAZOLE
  9. MABELIO [Suspect]
     Active Substance: CEFTOBIPROLE
     Indication: PNEUMONIA
     Dosage: 1 G, 1X/DAY
     Route: 042
     Dates: start: 20181220
  10. PHOSPHONEUROS [Concomitant]
     Active Substance: CALCIUM PHOSPHATE, DIBASIC, ANHYDROUS\MAGNESIUM GLYCEROPHOSPHATE\PHOSPHORIC ACID\SODIUM PHOSPHATE, DIBASIC
     Dosage: UNK
  11. ALPRAZOLAM MYLAN [Suspect]
     Active Substance: ALPRAZOLAM
     Dosage: 1 MG, 1X/DAY
     Route: 048
     Dates: end: 20181223
  12. BISOCE [Concomitant]
     Active Substance: BISOPROLOL
     Dosage: UNK
  13. DIFFU K [Concomitant]
     Active Substance: POTASSIUM CHLORIDE
     Dosage: UNK

REACTIONS (2)
  - Seizure [Fatal]
  - Bone marrow failure [Fatal]

NARRATIVE: CASE EVENT DATE: 20181223
